FAERS Safety Report 19110378 (Version 1)
Quarter: 2021Q2

REPORT INFORMATION
  Report Type: Spontaneous
  Country: US (occurrence: US)
  Receive Date: 20210408
  Receipt Date: 20210408
  Transmission Date: 20210717
  Serious: No
  Sender: FDA-Public Use
  Company Number: US-PFIZER INC-2021352184

PATIENT
  Age: 16 Year
  Sex: Female
  Weight: 58.97 kg

DRUGS (1)
  1. EPINEPHRINE/LIDOCAINE HYDROCHLORIDE [Suspect]
     Active Substance: EPINEPHRINE\LIDOCAINE HYDROCHLORIDE
     Indication: WISDOM TEETH REMOVAL
     Dosage: UNK

REACTIONS (3)
  - Heart rate increased [Unknown]
  - Emotional disorder [Unknown]
  - Panic attack [Unknown]
